FAERS Safety Report 15538079 (Version 1)
Quarter: 2018Q4

REPORT INFORMATION
  Report Type: Spontaneous
  Country: US (occurrence: US)
  Receive Date: 20181022
  Receipt Date: 20181022
  Transmission Date: 20190205
  Serious: No
  Sender: FDA-Public Use
  Company Number: US-PFIZER INC-2018426951

PATIENT
  Age: 61 Year
  Sex: Male

DRUGS (1)
  1. LYRICA [Suspect]
     Active Substance: PREGABALIN
     Indication: NERVE INJURY
     Dosage: 75 MG, 2X/DAY (2 A DAY)

REACTIONS (5)
  - Motor dysfunction [Unknown]
  - Pain in extremity [Unknown]
  - Hypoaesthesia [Unknown]
  - Foot deformity [Unknown]
  - Gait inability [Unknown]
